FAERS Safety Report 4488879-9 (Version None)
Quarter: 2004Q4

REPORT INFORMATION
  Report Type: 
  Country: None (occurrence: None)
  Receive Date: 20041029
  Receipt Date: 20041021
  Transmission Date: 20050328
  Serious: Yes (Death)
  Sender: FDA-Public Use
  Company Number: JP-MERCK-0410USA03829

PATIENT

DRUGS (1)
  1. PRIMAXIN [Suspect]
     Indication: PNEUMONIA
     Route: 042

REACTIONS (3)
  - DISEASE RECURRENCE [None]
  - HEPATIC FUNCTION ABNORMAL [None]
  - PNEUMONIA [None]
